FAERS Safety Report 23970735 (Version 2)
Quarter: 2024Q2

REPORT INFORMATION
  Report Type: Report from Study
  Country: US (occurrence: US)
  Receive Date: 20240613
  Receipt Date: 20240618
  Transmission Date: 20240716
  Serious: Yes (Other)
  Sender: FDA-Public Use
  Company Number: US-ABBVIE-5795065

PATIENT
  Age: 38 Year
  Sex: Male

DRUGS (1)
  1. SKYRIZI [Suspect]
     Active Substance: RISANKIZUMAB-RZAA
     Indication: Crohn^s disease
     Dosage: FORM STRENGTH: 180MG
     Route: 058
     Dates: start: 20230818, end: 20240320

REACTIONS (2)
  - Brain oedema [Unknown]
  - Encephalitis [Unknown]

NARRATIVE: CASE EVENT DATE: 20240508
